FAERS Safety Report 20044076 (Version 1)
Quarter: 2021Q4

REPORT INFORMATION
  Report Type: Spontaneous
  Country: US (occurrence: US)
  Receive Date: 20211108
  Receipt Date: 20211108
  Transmission Date: 20220303
  Serious: Yes (Other)
  Sender: FDA-Public Use
  Company Number: US-PFIZER INC-202101504002

PATIENT
  Age: 82 Year
  Sex: Female

DRUGS (2)
  1. CARBOPLATIN [Suspect]
     Active Substance: CARBOPLATIN
     Dosage: UNK
  2. TAXOL [Suspect]
     Active Substance: PACLITAXEL
     Dosage: UNK

REACTIONS (2)
  - Neuropathy peripheral [Unknown]
  - Myoclonus [Unknown]

NARRATIVE: CASE EVENT DATE: 20210301
